FAERS Safety Report 11556999 (Version 1)
Quarter: 2015Q3

REPORT INFORMATION
  Report Type: Spontaneous
  Country: US (occurrence: US)
  Receive Date: 20150916
  Receipt Date: 20150916
  Transmission Date: 20151125
  Serious: No
  Sender: FDA-Public Use
  Company Number: US-ELI_LILLY_AND_COMPANY-US200806004689

PATIENT
  Age: 61 Year
  Sex: Female
  Weight: 79.82 kg

DRUGS (9)
  1. HERBAL NOS [Concomitant]
     Active Substance: HERBALS
     Indication: ANXIETY
  2. SYNTHROID [Concomitant]
     Active Substance: LEVOTHYROXINE SODIUM
  3. BABY ASPIRIN [Concomitant]
     Active Substance: ASPIRIN
  4. FORTEO [Suspect]
     Active Substance: TERIPARATIDE
     Dates: start: 20080625
  5. FORTEO [Suspect]
     Active Substance: TERIPARATIDE
     Indication: OSTEOPOROSIS
     Dosage: UNK, UNK
     Dates: start: 20080617
  6. FORTEO [Suspect]
     Active Substance: TERIPARATIDE
  7. ATENOLOL. [Concomitant]
     Active Substance: ATENOLOL
     Indication: HEART RATE IRREGULAR
     Dosage: 25 MG, DAILY (1/D)
  8. PREVACID [Concomitant]
     Active Substance: LANSOPRAZOLE
     Dosage: 30 MG, UNK
  9. HERBAL NOS [Concomitant]
     Active Substance: HERBALS
     Indication: BLOOD PRESSURE MEASUREMENT

REACTIONS (5)
  - Sensory disturbance [Not Recovered/Not Resolved]
  - Dyspnoea [Not Recovered/Not Resolved]
  - Vomiting [Not Recovered/Not Resolved]
  - Asthenia [Recovered/Resolved]
  - Productive cough [Not Recovered/Not Resolved]

NARRATIVE: CASE EVENT DATE: 200806
